FAERS Safety Report 7932337-3 (Version None)
Quarter: 2011Q4

REPORT INFORMATION
  Report Type: 
  Country: None (occurrence: None)
  Receive Date: 20111121
  Receipt Date: 20111108
  Transmission Date: 20120403
  Serious: Yes (Hospitalization, Other)
  Sender: FDA-Public Use
  Company Number: US-ELI_LILLY_AND_COMPANY-US201011007296

PATIENT
  Sex: Female
  Weight: 58 kg

DRUGS (17)
  1. VITAMIN D [Concomitant]
     Dosage: UNK
  2. VITAMIN K TAB [Concomitant]
     Dosage: UNK, 3/W
  3. FERROUS SULFATE TAB [Concomitant]
  4. PROGESTIN INJ [Concomitant]
     Indication: BONE DISORDER
  5. C-VITAMIN [Concomitant]
  6. ASPIRIN [Concomitant]
  7. FORTEO [Suspect]
     Indication: OSTEOPOROSIS
     Dosage: 20 UG, QD
     Dates: start: 20101118
  8. FORTEO [Suspect]
     Dosage: 20 UG, QD
  9. CALCIUM [Concomitant]
  10. FISH OIL [Concomitant]
  11. FORTEO [Suspect]
     Dosage: 20 UG, QD
  12. CRANBERRY [Concomitant]
  13. VITAMIN TAB [Concomitant]
  14. FORTEO [Suspect]
     Dosage: 20 UG, QD
  15. FORTEO [Suspect]
     Dosage: 20 UG, QD
  16. MAGNESIUM [Concomitant]
  17. POTASSIUM [Concomitant]

REACTIONS (18)
  - CAROTID ARTERY STENOSIS [None]
  - CAROTID ARTERY OCCLUSION [None]
  - ASTHENIA [None]
  - MACULAR DEGENERATION [None]
  - VENOUS INJURY [None]
  - HEART RATE IRREGULAR [None]
  - CONTUSION [None]
  - VAGINAL HAEMORRHAGE [None]
  - SKIN INJURY [None]
  - FEAR [None]
  - ILL-DEFINED DISORDER [None]
  - VEIN DISORDER [None]
  - VOMITING [None]
  - DEPRESSED LEVEL OF CONSCIOUSNESS [None]
  - FALL [None]
  - TREMOR [None]
  - SPEECH DISORDER [None]
  - URINARY TRACT INFECTION [None]
